FAERS Safety Report 20425434 (Version 1)
Quarter: 2022Q1

REPORT INFORMATION
  Report Type: Spontaneous
  Country: AT (occurrence: AT)
  Receive Date: 20220204
  Receipt Date: 20220204
  Transmission Date: 20220423
  Serious: No
  Sender: FDA-Public Use
  Company Number: AT-EXELIXIS-CABO-21038599

PATIENT
  Age: 68 Year
  Sex: Male

DRUGS (11)
  1. CABOMETYX [Suspect]
     Active Substance: CABOZANTINIB S-MALATE
     Indication: Renal cell carcinoma
     Dosage: 40 MG, QD
     Route: 048
     Dates: start: 20191003
  2. CABOMETYX [Suspect]
     Active Substance: CABOZANTINIB S-MALATE
     Dosage: 40 MG (1-5 DAYS ON AND 2 DAYS OFF)
     Route: 048
  3. NIVOLUMAB [Suspect]
     Active Substance: NIVOLUMAB
     Indication: Renal cell carcinoma
     Dosage: UNK
  4. HYDROCORTONE [Concomitant]
     Active Substance: HYDROCORTISONE
  5. VITAMINS WITH MINERALS [Concomitant]
     Active Substance: MINERALS\VITAMINS
  6. PANTOPRAZOLE SODIUM [Concomitant]
     Active Substance: PANTOPRAZOLE SODIUM
  7. HALCION [Concomitant]
     Active Substance: TRIAZOLAM
  8. GABAPENTIN [Concomitant]
     Active Substance: GABAPENTIN
  9. LERCANIDIPINE [Concomitant]
     Active Substance: LERCANIDIPINE
  10. DRONABINOL [Concomitant]
     Active Substance: DRONABINOL
  11. OXYCODONE [Concomitant]
     Active Substance: OXYCODONE

REACTIONS (2)
  - Inappropriate schedule of product administration [Unknown]
  - Off label use [Unknown]
